FAERS Safety Report 17120760 (Version 1)
Quarter: 2019Q4

REPORT INFORMATION
  Report Type: Report from Study
  Country: None (occurrence: CH)
  Receive Date: 20191206
  Receipt Date: 20191206
  Transmission Date: 20200122
  Serious: Yes (Death)
  Sender: FDA-Public Use
  Company Number: CH-ABBVIE-19K-151-3184088-00

PATIENT
  Age: 68 Year
  Sex: Female

DRUGS (3)
  1. DUODOPA [Suspect]
     Active Substance: CARBIDOPA\LEVODOPA
     Dosage: MD: 7 ML, CRD: 2 ML/H, CRN: 1 ML/H, ED: 1.5 ML?1 CASETTE PER DAY ,24 H THERAPY
     Route: 050
     Dates: start: 20190110
  2. DUODOPA [Suspect]
     Active Substance: CARBIDOPA\LEVODOPA
     Indication: PARKINSON^S DISEASE
     Dosage: STRENGTH (CMP): 20 MG/ML 5 MG/ML
     Route: 050
     Dates: start: 20180605, end: 20181019
  3. DUODOPA [Suspect]
     Active Substance: CARBIDOPA\LEVODOPA
     Dosage: MD: 7 ML, CONTINUOUS RATE DAY: 2.8 ML/H, CRN: 0 ML/H, ED: 1.5 ML?16 H THERAPY
     Route: 050
     Dates: start: 20181019, end: 20190110

REACTIONS (1)
  - Death [Fatal]

NARRATIVE: CASE EVENT DATE: 20191204
